FAERS Safety Report 24712616 (Version 1)
Quarter: 2024Q4

REPORT INFORMATION
  Report Type: Spontaneous
  Country: US (occurrence: None)
  Receive Date: 20241207
  Receipt Date: 20241207
  Transmission Date: 20250115
  Serious: Yes (Other)
  Sender: Public
  Company Number: None

PATIENT
  Age: 30 Year
  Sex: Female
  Weight: 82.8 kg

DRUGS (1)
  1. XIFAXAN [Suspect]
     Active Substance: RIFAXIMIN
     Indication: Irritable bowel syndrome
     Dosage: 42 TABLETS 3 TIMES A DAY ORAL
     Route: 048
     Dates: start: 20241204, end: 20241204

REACTIONS (2)
  - Chills [None]
  - Vomiting [None]

NARRATIVE: CASE EVENT DATE: 20241204
